FAERS Safety Report 8059566-5 (Version None)
Quarter: 2012Q1

REPORT INFORMATION
  Report Type: 
  Country: None (occurrence: None)
  Receive Date: 20120120
  Receipt Date: 20120116
  Transmission Date: 20120608
  Serious: Yes (Death, Life-Threatening)
  Sender: FDA-Public Use
  Company Number: JP-B.I. PHARMACEUTICALS,INC./RIDGEFIELD-2011-BP-28425NB

PATIENT
  Sex: Male
  Weight: 60.8 kg

DRUGS (4)
  1. PRADAXA [Suspect]
     Indication: ATRIAL FIBRILLATION
     Dosage: 220 MG
     Route: 048
     Dates: start: 20110530, end: 20111215
  2. XELODA [Suspect]
     Indication: LARGE INTESTINE CARCINOMA
     Dosage: 3600 MG
     Route: 048
     Dates: end: 20111214
  3. AVASTIN [Suspect]
     Indication: LARGE INTESTINE CARCINOMA
     Dosage: 495 MG
     Route: 042
     Dates: end: 20110622
  4. OXALIPLATIN [Suspect]
     Indication: LARGE INTESTINE CARCINOMA
     Dosage: 220 MG
     Route: 042

REACTIONS (1)
  - INTERSTITIAL LUNG DISEASE [None]
